FAERS Safety Report 6175052-1 (Version None)
Quarter: 2009Q2

REPORT INFORMATION
  Report Type: 
  Country: None (occurrence: None)
  Receive Date: 20090430
  Receipt Date: 20090213
  Transmission Date: 20091009
  Serious: No
  Sender: FDA-Public Use
  Company Number: US-ASTRAZENECA-2009UW04229

PATIENT
  Sex: Female

DRUGS (11)
  1. NEXIUM [Suspect]
     Indication: GASTROOESOPHAGEAL REFLUX DISEASE
     Route: 048
     Dates: start: 20090109
  2. NEXIUM [Suspect]
     Indication: GASTROINTESTINAL EROSION
     Route: 048
     Dates: start: 20090109
  3. NEXIUM [Suspect]
     Route: 048
  4. NEXIUM [Suspect]
     Route: 048
  5. INSULIN [Concomitant]
     Indication: DIABETES MELLITUS
  6. METFORMIN HCL [Concomitant]
  7. ATACAND [Concomitant]
     Route: 048
  8. NORVASC [Concomitant]
     Indication: HYPERTENSION
  9. NADOLOL [Concomitant]
  10. AMILORIDE HYDROCHLORIDE [Concomitant]
     Indication: DIURETIC THERAPY
  11. SINGULAIR [Concomitant]
     Indication: MULTIPLE ALLERGIES

REACTIONS (3)
  - DRY MOUTH [None]
  - EROSIVE OESOPHAGITIS [None]
  - GASTROINTESTINAL INFLAMMATION [None]
